FAERS Safety Report 20015647 (Version 1)
Quarter: 2021Q4

REPORT INFORMATION
  Report Type: Spontaneous
  Country: US (occurrence: None)
  Receive Date: 20211101
  Receipt Date: 20211101
  Transmission Date: 20220303
  Serious: Yes (Life-Threatening, Hospitalization)
  Sender: FDA-Public Use
  Company Number: None

PATIENT
  Age: 72 Year
  Sex: Male

DRUGS (2)
  1. APIXABAN [Suspect]
     Active Substance: APIXABAN
     Indication: Deep vein thrombosis
     Dosage: FREQUENCY : TWICE A DAY;?
     Route: 048
     Dates: start: 20210611, end: 20211011
  2. APIXABAN [Suspect]
     Active Substance: APIXABAN
     Indication: Atrial fibrillation

REACTIONS (13)
  - Muscular weakness [None]
  - Hemiparesis [None]
  - Cerebral haemorrhage [None]
  - Basal ganglia haemorrhage [None]
  - SARS-CoV-2 test positive [None]
  - Anaemia [None]
  - Hyperkalaemia [None]
  - Blood creatinine increased [None]
  - Cerebrovascular accident [None]
  - Joint effusion [None]
  - Deep vein thrombosis [None]
  - Spinal osteoarthritis [None]
  - Prothrombin time prolonged [None]

NARRATIVE: CASE EVENT DATE: 20211011
